FAERS Safety Report 20215663 (Version 2)
Quarter: 2021Q4

REPORT INFORMATION
  Report Type: Spontaneous
  Country: US (occurrence: US)
  Receive Date: 20211222
  Receipt Date: 20211222
  Transmission Date: 20220303
  Serious: Yes (Hospitalization)
  Sender: FDA-Public Use
  Company Number: US-ENDO PHARMACEUTICALS INC-2021-013503

PATIENT
  Age: 23 Year
  Sex: Male
  Weight: 69.841 kg

DRUGS (2)
  1. KETALAR [Suspect]
     Active Substance: KETAMINE HYDROCHLORIDE
     Indication: Post-traumatic stress disorder
     Dosage: 0.5 MG/KG (6 INFUSIONS OVER 14 DAYS), INFUSION
     Route: 065
  2. KETALAR [Suspect]
     Active Substance: KETAMINE HYDROCHLORIDE
     Indication: Bipolar disorder

REACTIONS (2)
  - Mania [Recovered/Resolved]
  - Off label use [Recovered/Resolved]
